FAERS Safety Report 7114209-X (Version None)
Quarter: 2010Q4

REPORT INFORMATION
  Report Type: 
  Country: None (occurrence: None)
  Receive Date: 20101119
  Receipt Date: 20101109
  Transmission Date: 20110411
  Serious: Yes (Hospitalization)
  Sender: FDA-Public Use
  Company Number: GB-SANOFI-AVENTIS-2010SA068577

PATIENT
  Age: 75 Year
  Sex: Male

DRUGS (13)
  1. DRONEDARONE HCL [Suspect]
     Indication: TACHYARRHYTHMIA
     Route: 048
     Dates: start: 20100527, end: 20101022
  2. ASPIRIN [Concomitant]
     Route: 048
  3. BISOPROLOL FUMARATE [Concomitant]
     Route: 048
  4. CANDESARTAN CILEXETIL [Concomitant]
  5. CLOPIDOGREL [Concomitant]
     Route: 048
  6. EPLERENONE [Concomitant]
  7. FRUSEMIDE [Concomitant]
  8. GLICLAZIDE [Concomitant]
  9. PILOCARPINE [Concomitant]
  10. PRAVASTATIN [Concomitant]
  11. SALBUTAMOL [Concomitant]
     Dosage: DOSE:2 UNIT(S)
  12. TAMSULOSIN HCL [Concomitant]
  13. XALATAN [Concomitant]
     Dosage: DOSE:1 UNIT(S)

REACTIONS (4)
  - BLOOD THYROID STIMULATING HORMONE DECREASED [None]
  - GLOMERULAR FILTRATION RATE DECREASED [None]
  - RENAL FAILURE ACUTE [None]
  - THYROXINE ABNORMAL [None]
